FAERS Safety Report 16876576 (Version 1)
Quarter: 2019Q4

REPORT INFORMATION
  Report Type: Spontaneous
  Country: IR (occurrence: IR)
  Receive Date: 20191002
  Receipt Date: 20191002
  Transmission Date: 20200122
  Serious: Yes (Life-Threatening, Hospitalization, Other)
  Sender: FDA-Public Use
  Company Number: IR-ACCORD-156186

PATIENT
  Age: 43 Year
  Sex: Male

DRUGS (4)
  1. RISPERIDONE. [Suspect]
     Active Substance: RISPERIDONE
     Indication: SCHIZOAFFECTIVE DISORDER
     Dates: end: 2016
  2. AMITRIPTYLINE [Concomitant]
     Active Substance: AMITRIPTYLINE
     Indication: SCHIZOAFFECTIVE DISORDER
  3. TRIHEXYPHENIDYL [Concomitant]
     Active Substance: TRIHEXYPHENIDYL
     Indication: SCHIZOAFFECTIVE DISORDER
  4. CLOZAPINE. [Suspect]
     Active Substance: CLOZAPINE
     Indication: SCHIZOAFFECTIVE DISORDER
     Dates: end: 2016

REACTIONS (5)
  - Hypernatraemia [Unknown]
  - Neuroleptic malignant syndrome [Unknown]
  - Ileus paralytic [Unknown]
  - Renal tubular necrosis [Unknown]
  - Anaemia [Unknown]

NARRATIVE: CASE EVENT DATE: 2016
